FAERS Safety Report 7553860-X (Version None)
Quarter: 2011Q2

REPORT INFORMATION
  Report Type: 
  Country: None (occurrence: None)
  Receive Date: 20110617
  Receipt Date: 20110609
  Transmission Date: 20111010
  Serious: Yes (Other)
  Sender: FDA-Public Use
  Company Number: FR-BRISTOL-MYERS SQUIBB COMPANY-15829666

PATIENT
  Age: 78 Year
  Sex: Male

DRUGS (6)
  1. KARDEGIC [Concomitant]
     Dates: start: 20110101
  2. GLUCOPHAGE [Concomitant]
     Dates: start: 20110101
  3. GLYBURIDE [Concomitant]
     Dates: start: 20110101
  4. DIASTABOL [Concomitant]
     Dates: start: 20110101
  5. IRBESARTAN [Suspect]
     Indication: HYPERTENSION
     Route: 048
     Dates: start: 20110101
  6. NEXIUM [Concomitant]
     Dates: start: 20110101

REACTIONS (2)
  - EOSINOPHILIA [None]
  - ANGIOEDEMA [None]
